FAERS Safety Report 15986603 (Version 3)
Quarter: 2019Q1

REPORT INFORMATION
  Report Type: Spontaneous
  Country: MM (occurrence: MM)
  Receive Date: 20190220
  Receipt Date: 20190306
  Transmission Date: 20190418
  Serious: Yes (Death, Hospitalization, Other)
  Sender: FDA-Public Use
  Company Number: MM-JNJFOC-20190217337

PATIENT
  Age: 60 Year
  Sex: Male
  Weight: 51.5 kg

DRUGS (7)
  1. DELAMANID [Suspect]
     Active Substance: DELAMANID
     Indication: TUBERCULOSIS
     Route: 048
     Dates: start: 20190201, end: 20190213
  2. PYRAZINAMIDE. [Suspect]
     Active Substance: PYRAZINAMIDE
     Indication: TUBERCULOSIS
     Route: 048
     Dates: start: 20190201
  3. PYRIDOXINE [Concomitant]
     Active Substance: PYRIDOXINE
     Route: 048
     Dates: start: 20190201
  4. BEDAQUILINE [Suspect]
     Active Substance: BEDAQUILINE
     Indication: TUBERCULOSIS
     Route: 048
     Dates: start: 20190201, end: 20190210
  5. LINEZOLID. [Suspect]
     Active Substance: LINEZOLID
     Indication: TUBERCULOSIS
     Route: 048
     Dates: start: 20190201
  6. INSULIN MIXTARD [Concomitant]
     Active Substance: INSULIN HUMAN
     Indication: DIABETES MELLITUS
     Dosage: MORNING 24 U AND EVENING 12 U
     Route: 058
     Dates: start: 20190204
  7. CLOFAZIMINE [Suspect]
     Active Substance: CLOFAZIMINE
     Indication: TUBERCULOSIS
     Route: 048
     Dates: start: 20190201, end: 20190210

REACTIONS (9)
  - Myocardial infarction [Fatal]
  - Hypovolaemic shock [Unknown]
  - Haemoglobin decreased [Unknown]
  - Hypoglycaemia [Unknown]
  - Fluid overload [Unknown]
  - Hypokalaemia [Unknown]
  - Renal failure [Unknown]
  - Electrocardiogram QT prolonged [Fatal]
  - Cardiogenic shock [Unknown]

NARRATIVE: CASE EVENT DATE: 201902
